FAERS Safety Report 12551711 (Version 1)
Quarter: 2016Q3

REPORT INFORMATION
  Report Type: Spontaneous
  Country: US (occurrence: None)
  Receive Date: 20160712
  Receipt Date: 20160712
  Transmission Date: 20161109
  Serious: Yes (Disabling, Other)
  Sender: FDA-Public Use
  Company Number: None

PATIENT
  Age: 50 Year
  Sex: Female
  Weight: 64.41 kg

DRUGS (4)
  1. LEVAQUIN [Suspect]
     Active Substance: LEVOFLOXACIN
     Indication: TOXIC SHOCK SYNDROME
     Route: 048
     Dates: start: 20140910, end: 20140920
  2. OMEGA OILS [Concomitant]
  3. MULTI VITAMIN [Concomitant]
     Active Substance: VITAMINS
  4. LEVAQUIN [Suspect]
     Active Substance: LEVOFLOXACIN
     Indication: URINARY TRACT INFECTION
     Route: 048
     Dates: start: 20140910, end: 20140920

REACTIONS (13)
  - Neck pain [None]
  - Pain in extremity [None]
  - Nerve injury [None]
  - Oropharyngeal pain [None]
  - Discomfort [None]
  - Tremor [None]
  - Chest pain [None]
  - Mental impairment [None]
  - Asthenia [None]
  - Headache [None]
  - Sensation of foreign body [None]
  - Panic attack [None]
  - Gastrooesophageal reflux disease [None]

NARRATIVE: CASE EVENT DATE: 20140920
